FAERS Safety Report 7880097-7 (Version None)
Quarter: 2011Q4

REPORT INFORMATION
  Report Type: 
  Country: None (occurrence: None)
  Receive Date: 20111101
  Receipt Date: 20111027
  Transmission Date: 20120403
  Serious: Yes (Other)
  Sender: FDA-Public Use
  Company Number: US-MYLANLABS-2011S1020621

PATIENT
  Age: 14 Year
  Sex: Female
  Weight: 47.63 kg

DRUGS (5)
  1. CLARAVIS [Suspect]
     Indication: ACNE
     Route: 048
     Dates: start: 20110413, end: 20110912
  2. AMNESTEEM [Suspect]
     Indication: ACNE
     Route: 048
     Dates: start: 20110101, end: 20110912
  3. AMNESTEEM [Suspect]
     Route: 048
     Dates: start: 20110101, end: 20110912
  4. CLARAVIS [Suspect]
     Route: 048
     Dates: start: 20110413, end: 20110101
  5. CLARAVIS [Suspect]
     Route: 048
     Dates: start: 20110413, end: 20110101

REACTIONS (2)
  - SUICIDAL IDEATION [None]
  - DEPRESSION [None]
